FAERS Safety Report 9594641 (Version 2)
Quarter: 2013Q4

REPORT INFORMATION
  Report Type: Spontaneous
  Country: US (occurrence: US)
  Receive Date: 20131004
  Receipt Date: 20131004
  Transmission Date: 20140711
  Serious: Yes (Hospitalization, Other)
  Sender: FDA-Public Use
  Company Number: US-AMGEN-USASP2012037087

PATIENT
  Age: 61 Year
  Sex: Female

DRUGS (3)
  1. ENBREL [Suspect]
     Indication: PSORIATIC ARTHROPATHY
     Dosage: 50 MG, QWK
     Route: 065
     Dates: start: 20070101
  2. ENBREL [Suspect]
     Indication: PSORIASIS
  3. METHOTREXATE [Concomitant]
     Dosage: 2.5 MG, QWK

REACTIONS (8)
  - Peripheral artery bypass [Recovered/Resolved]
  - Femur fracture [Recovered/Resolved]
  - Vascular operation [Recovered/Resolved]
  - Extremity necrosis [Recovered/Resolved]
  - Fall [Recovered/Resolved]
  - Feeling cold [Recovered/Resolved]
  - Pain in extremity [Recovered/Resolved]
  - Localised infection [Recovered/Resolved]
